FAERS Safety Report 7310719-0 (Version None)
Quarter: 2011Q1

REPORT INFORMATION
  Report Type: 
  Country: None (occurrence: None)
  Receive Date: 20110224
  Receipt Date: 20110113
  Transmission Date: 20110831
  Serious: Yes (Other)
  Sender: FDA-Public Use
  Company Number: PHHY2011JP08592

PATIENT
  Age: 56 Year
  Sex: Female

DRUGS (1)
  1. FAMCICLOVIR [Suspect]
     Dosage: 500 MG PER DAY
     Route: 048
     Dates: start: 20110107, end: 20110107

REACTIONS (1)
  - ANGIOEDEMA [None]
